FAERS Safety Report 8812168 (Version 2)
Quarter: 2012Q4

REPORT INFORMATION
  Report Type: 
  Country: IE (occurrence: IE)
  Receive Date: 20120927
  Receipt Date: 20121102
  Transmission Date: 20130627
  Serious: Yes (Hospitalization)
  Sender: FDA-Public Use
  Company Number: IE-ELI_LILLY_AND_COMPANY-IE201208007411

PATIENT
  Age: 77 None
  Sex: Female
  Weight: 48.9 kg

DRUGS (8)
  1. FORSTEO [Suspect]
     Indication: OSTEOPOROSIS
     Dosage: 20 ug, qd
     Route: 058
     Dates: start: 20120820
  2. NEOCLARITYN [Concomitant]
     Dosage: UNK, unknown
     Route: 065
  3. FLORINEF [Concomitant]
     Dosage: UNK, unknown
     Route: 065
  4. HYDROCORTISONE [Concomitant]
     Dosage: UNK, unknown
     Route: 065
  5. ZIMOVANE [Concomitant]
     Dosage: UNK, unknown
     Route: 065
  6. IXPRIM [Concomitant]
     Dosage: UNK, unknown
     Route: 065
  7. CALCICHEW [Concomitant]
     Dosage: UNK, unknown
     Route: 065
  8. D3 [Concomitant]
     Dosage: 1 DF, qd

REACTIONS (7)
  - Weight decreased [Recovered/Resolved]
  - Fatigue [Recovered/Resolved]
  - Musculoskeletal chest pain [Recovered/Resolved]
  - Anxiety [Recovered/Resolved]
  - Pain in extremity [Unknown]
  - Back pain [Unknown]
  - Spinal fracture [Unknown]
